FAERS Safety Report 21539086 (Version 2)
Quarter: 2022Q4

REPORT INFORMATION
  Report Type: Spontaneous
  Country: US (occurrence: US)
  Receive Date: 20221102
  Receipt Date: 20221108
  Transmission Date: 20230113
  Serious: Yes (Other)
  Sender: FDA-Public Use
  Company Number: US-ABBVIE-4184866

PATIENT
  Age: 37 Year
  Sex: Female
  Weight: 75 kg

DRUGS (6)
  1. HUMIRA [Suspect]
     Active Substance: ADALIMUMAB
     Indication: Axial spondyloarthritis
     Route: 058
     Dates: start: 202109
  2. BUPROPION [Concomitant]
     Active Substance: BUPROPION
     Indication: Product used for unknown indication
  3. INDOMETHACIN [Concomitant]
     Active Substance: INDOMETHACIN
     Indication: Product used for unknown indication
  4. AMBIEN [Concomitant]
     Active Substance: ZOLPIDEM TARTRATE
     Indication: Product used for unknown indication
  5. NURTEC ODT [Concomitant]
     Active Substance: RIMEGEPANT SULFATE
     Indication: Product used for unknown indication
  6. CARBIDOPA\LEVODOPA [Concomitant]
     Active Substance: CARBIDOPA\LEVODOPA
     Indication: Product used for unknown indication

REACTIONS (10)
  - Rotator cuff syndrome [Recovering/Resolving]
  - Osteotomy [Unknown]
  - Off label use [Not Recovered/Not Resolved]
  - Incorrect dose administered [Unknown]
  - Exostosis [Recovering/Resolving]
  - Inflammation [Recovering/Resolving]
  - Post procedural inflammation [Unknown]
  - Joint range of motion decreased [Recovering/Resolving]
  - Device issue [Unknown]
  - Cartilage injury [Recovering/Resolving]

NARRATIVE: CASE EVENT DATE: 20210901
